FAERS Safety Report 7495123-7 (Version None)
Quarter: 2011Q2

REPORT INFORMATION
  Report Type: 
  Country: None (occurrence: None)
  Receive Date: 20110520
  Receipt Date: 20110516
  Transmission Date: 20111010
  Serious: Yes (Other)
  Sender: FDA-Public Use
  Company Number: BR-GENENTECH-319150

PATIENT
  Sex: Female
  Weight: 68 kg

DRUGS (1)
  1. RITUXIMAB [Suspect]
     Indication: PRODUCT USED FOR UNKNOWN INDICATION
     Dosage: UNK
     Route: 042
     Dates: start: 20101001, end: 20101001

REACTIONS (1)
  - MYOCARDIAL INFARCTION [None]
